FAERS Safety Report 5555911-0 (Version None)
Quarter: 2007Q4

REPORT INFORMATION
  Report Type: 
  Country: None (occurrence: None)
  Receive Date: 20071213
  Receipt Date: 20071206
  Transmission Date: 20080405
  Serious: Yes (Other)
  Sender: FDA-Public Use
  Company Number: CA-BOEHRINGER INGELHEIM PHARMACEUTICALS, INC.-2007-DE-07238GD

PATIENT
  Sex: Male

DRUGS (4)
  1. APTIVUS [Suspect]
     Indication: HIV TEST POSITIVE
     Dates: start: 20021201
  2. ZIDOVUDINE [Suspect]
     Indication: HIV TEST POSITIVE
     Dates: start: 20021201
  3. LAMIVUDINE [Suspect]
     Indication: HIV TEST POSITIVE
     Dates: start: 20021201
  4. TENOFOVIR DISOPROXIL FUMARATE [Suspect]
     Indication: HIV TEST POSITIVE
     Dates: start: 20021201

REACTIONS (10)
  - COUGH [None]
  - DIARRHOEA [None]
  - DRUG RESISTANCE [None]
  - FATIGUE [None]
  - HEADACHE [None]
  - NAUSEA [None]
  - NEUTROPENIA [None]
  - NON-HODGKIN'S LYMPHOMA [None]
  - PAIN [None]
  - WEIGHT DECREASED [None]
